FAERS Safety Report 6497318-8 (Version None)
Quarter: 2009Q4

REPORT INFORMATION
  Report Type: 
  Country: None (occurrence: None)
  Receive Date: 20091215
  Receipt Date: 20090910
  Transmission Date: 20100525
  Serious: No
  Sender: FDA-Public Use
  Company Number: A0806749A

PATIENT
  Age: 63 Year
  Sex: Male

DRUGS (6)
  1. AVODART [Suspect]
     Dosage: .5MG TWICE PER DAY
     Route: 048
     Dates: start: 20090224
  2. HYDROCHLOROTHIAZIDE [Concomitant]
  3. BIOTIN [Concomitant]
  4. VITAMIN D [Concomitant]
  5. M.V.I. [Concomitant]
  6. ALDACTONE [Concomitant]

REACTIONS (2)
  - OFF LABEL USE [None]
  - THERAPEUTIC RESPONSE UNEXPECTED [None]
